FAERS Safety Report 18281565 (Version 2)
Quarter: 2020Q3

REPORT INFORMATION
  Report Type: Report from Study
  Country: PK (occurrence: PK)
  Receive Date: 20200918
  Receipt Date: 20200924
  Transmission Date: 20201103
  Serious: Yes (Death, Hospitalization)
  Sender: FDA-Public Use
  Company Number: NVSC2020PK254902

PATIENT
  Age: 68 Year
  Sex: Male

DRUGS (1)
  1. UPERIO [Suspect]
     Active Substance: SACUBITRIL\VALSARTAN
     Indication: CARDIAC FAILURE
     Dosage: 100 MG, BID
     Route: 048
     Dates: start: 20181023

REACTIONS (3)
  - Cardio-respiratory arrest [Fatal]
  - Cardiac failure [Fatal]
  - Hypertension [Fatal]

NARRATIVE: CASE EVENT DATE: 20191115
